FAERS Safety Report 9643233 (Version 2)
Quarter: 2013Q4

REPORT INFORMATION
  Report Type: Spontaneous
  Country: US (occurrence: US)
  Receive Date: 20131024
  Receipt Date: 20131024
  Transmission Date: 20140711
  Serious: Yes (Other)
  Sender: FDA-Public Use
  Company Number: US-TAKEDA-TPA2012A10588

PATIENT
  Sex: 0

DRUGS (4)
  1. ACTOS [Suspect]
     Indication: TYPE 2 DIABETES MELLITUS
     Dosage: 15 MG, UNK
     Dates: start: 20060124, end: 20080708
  2. METFORMIN HYDROCHLORIDE [Concomitant]
     Dosage: UNK
     Dates: start: 20101028, end: 20110414
  3. DIABETA                            /00145301/ [Concomitant]
     Dosage: UNK
     Dates: start: 20070109, end: 20110411
  4. LANTUS [Concomitant]
     Dosage: UNK
     Dates: start: 20110412

REACTIONS (2)
  - Blood urine present [Unknown]
  - Bladder cancer [Not Recovered/Not Resolved]
